FAERS Safety Report 5275366-3 (Version None)
Quarter: 2007Q1

REPORT INFORMATION
  Report Type: 
  Country: None (occurrence: None)
  Receive Date: 20061219
  Receipt Date: 20061009
  Transmission Date: 20070707
  Serious: Yes (Hospitalization, Other)
  Sender: FDA-Public Use
  Company Number: US-JNJFOC-20061002412

PATIENT
  Age: 18 Year
  Sex: Female
  Weight: 68.0396 kg

DRUGS (1)
  1. ORTHO EVRA [Suspect]
     Indication: CONTRACEPTION
     Dates: start: 20050501, end: 20050701

REACTIONS (1)
  - PULMONARY EMBOLISM [None]
